FAERS Safety Report 10247342 (Version 1)
Quarter: 2014Q2

REPORT INFORMATION
  Report Type: Spontaneous
  Country: US (occurrence: US)
  Receive Date: 20140619
  Receipt Date: 20140619
  Transmission Date: 20141212
  Serious: No
  Sender: FDA-Public Use
  Company Number: US-PFIZER INC-2014164025

PATIENT
  Sex: Male

DRUGS (2)
  1. SUTENT [Suspect]
     Indication: NEOPLASM MALIGNANT
     Dosage: UNK
  2. INLYTA [Suspect]
     Indication: NEOPLASM MALIGNANT
     Dosage: UNK

REACTIONS (6)
  - Disease progression [Unknown]
  - Neoplasm malignant [Unknown]
  - Weight decreased [Unknown]
  - Fatigue [Unknown]
  - Hair colour changes [Unknown]
  - Hypertension [Unknown]
